APPROVED DRUG PRODUCT: XELJANZ
Active Ingredient: TOFACITINIB CITRATE
Strength: EQ 10MG BASE
Dosage Form/Route: TABLET;ORAL
Application: N203214 | Product #002
Applicant: PF PRISM CV
Approved: May 30, 2018 | RLD: Yes | RS: Yes | Type: RX

PATENTS:
Patent RE41783 | Expires: Dec 8, 2025
Patent RE41783*PED | Expires: Jun 8, 2026